FAERS Safety Report 9903007 (Version 1)
Quarter: 2014Q1

REPORT INFORMATION
  Report Type: Spontaneous
  Country: NL (occurrence: NL)
  Receive Date: 20140217
  Receipt Date: 20140217
  Transmission Date: 20141002
  Serious: Yes (Other)
  Sender: FDA-Public Use
  Company Number: PHHY2014NL017162

PATIENT
  Sex: Male

DRUGS (15)
  1. SANDIMMUN [Suspect]
     Indication: TRANSPLANT REJECTION
     Dosage: 25 MG, BID
     Route: 041
     Dates: end: 20131205
  2. CICLOSPORIN [Suspect]
     Indication: TRANSPLANT REJECTION
     Route: 041
     Dates: end: 20131205
  3. FUROSEMIDE [Concomitant]
     Dosage: 10 MG, BID
  4. GRANISETRON FRESENIUS [Concomitant]
     Dosage: 0.6 MG, BID
  5. MEROPENEM FRESENIUS KABI [Concomitant]
     Dosage: 350 MG, BID
  6. SODIUM HYDROCARBONATE [Concomitant]
     Dosage: 5 ML, QID
  7. TRAMAL [Concomitant]
     Dosage: 10 MG, BID
  8. TAVEGYL [Concomitant]
     Dosage: 0.4 MG, QD
  9. ENALAPRIL [Concomitant]
     Dosage: 1.5 MG, BID
  10. ZELITREX [Concomitant]
     Dosage: 125 MG, BID
  11. ADRENALIN [Concomitant]
     Dosage: 0.17 MG, QD
     Dates: start: 20131106
  12. AMLODIPINE BESILATE [Concomitant]
     Dosage: 2 MG, BID
  13. DIADRESON-F AQUOSOM [Concomitant]
     Dosage: 34 MG, QD
  14. LOSEC [Concomitant]
     Dosage: 20 MG, QD
  15. DRIDASE [Concomitant]

REACTIONS (1)
  - Blindness [Recovering/Resolving]
